FAERS Safety Report 12530970 (Version 1)
Quarter: 2016Q3

REPORT INFORMATION
  Report Type: Report from Study
  Country: TR (occurrence: TR)
  Receive Date: 20160706
  Receipt Date: 20160706
  Transmission Date: 20161109
  Serious: Yes (Other)
  Sender: FDA-Public Use
  Company Number: TR-BAXTER-2016BAX035960

PATIENT

DRUGS (2)
  1. UROMITEXAN 400 MG/4 ML. (MESNA) [Suspect]
     Active Substance: MESNA
     Indication: PROPHYLAXIS
     Dosage: 20-40% OF CYCLOPHOSPHAMIDE DOSE
     Route: 042
  2. ENDOXAN 1G. IV [Suspect]
     Active Substance: CYCLOPHOSPHAMIDE
     Indication: RHEUMATIC DISORDER
     Dosage: 0.5-0.6 G/M2, EVERY 2-4 WEEKS
     Route: 042

REACTIONS (1)
  - Cystitis haemorrhagic [Unknown]
